FAERS Safety Report 8144322-X (Version None)
Quarter: 2012Q1

REPORT INFORMATION
  Report Type: 
  Country: None (occurrence: None)
  Receive Date: 20120217
  Receipt Date: 20120209
  Transmission Date: 20120608
  Serious: Yes (Hospitalization, Other)
  Sender: FDA-Public Use
  Company Number: IT-JNJFOC-20111012326

PATIENT
  Sex: Female
  Weight: 50 kg

DRUGS (6)
  1. FRISIUM [Suspect]
     Indication: EPILEPSY
     Route: 048
     Dates: start: 20111026, end: 20111026
  2. TOPAMAX [Suspect]
     Indication: EPILEPSY
     Route: 048
     Dates: start: 20050101
  3. FRISIUM [Suspect]
     Route: 048
  4. TOPAMAX [Suspect]
     Route: 048
     Dates: start: 20111026, end: 20111026
  5. PHENOBARBITAL TAB [Suspect]
     Route: 048
  6. PHENOBARBITAL TAB [Suspect]
     Indication: EPILEPSY
     Route: 048
     Dates: start: 20111026, end: 20111026

REACTIONS (3)
  - SLUGGISHNESS [None]
  - SELF INJURIOUS BEHAVIOUR [None]
  - MULTIPLE DRUG OVERDOSE INTENTIONAL [None]
